FAERS Safety Report 5528757-7 (Version None)
Quarter: 2007Q4

REPORT INFORMATION
  Report Type: 
  Country: None (occurrence: None)
  Receive Date: 20071129
  Receipt Date: 20071120
  Transmission Date: 20080405
  Serious: Yes (Disabling, Other)
  Sender: FDA-Public Use
  Company Number: GB-JNJFOC-20071100505

PATIENT
  Sex: Female
  Weight: 60 kg

DRUGS (9)
  1. INFLIXIMAB [Suspect]
     Indication: RHEUMATOID ARTHRITIS
     Route: 042
  2. METHOTREXATE [Concomitant]
  3. PREDNISOLONE [Concomitant]
  4. CO-PROXAMOL [Concomitant]
  5. FOLIC ACID [Concomitant]
  6. HORMONE REPLACEMENT THERAPY [Concomitant]
  7. VITAMIN CAP [Concomitant]
  8. NEXIUM [Concomitant]
  9. VIOXX [Concomitant]

REACTIONS (3)
  - ANKLE ARTHROPLASTY [None]
  - IMPAIRED HEALING [None]
  - WOUND INFECTION [None]
